FAERS Safety Report 9807040 (Version 4)
Quarter: 2014Q1

REPORT INFORMATION
  Report Type: Report from Study
  Country: CA (occurrence: CA)
  Receive Date: 20140110
  Receipt Date: 20140312
  Transmission Date: 20141002
  Serious: Yes (Other)
  Sender: FDA-Public Use
  Company Number: CA-ROCHE-1124026

PATIENT
  Age: 64 Year
  Sex: Male
  Weight: 47.35 kg

DRUGS (16)
  1. TOCILIZUMAB [Suspect]
     Indication: RHEUMATOID ARTHRITIS
     Dosage: DATE OF THE MOST RECENT DOSE :23/NOV/2011
     Route: 042
     Dates: start: 20110715
  2. TOCILIZUMAB [Suspect]
     Route: 042
     Dates: start: 20131119, end: 20140218
  3. PLAQUENIL [Concomitant]
     Route: 065
  4. FENTANYL [Concomitant]
  5. NEXIUM [Concomitant]
     Route: 065
  6. ATENOLOL [Concomitant]
     Route: 065
  7. DIOVAN [Concomitant]
  8. METFORMIN [Concomitant]
     Route: 065
  9. DILTIAZEM [Concomitant]
     Indication: HYPERTENSION
     Route: 065
  10. FOLIC ACID [Concomitant]
     Route: 065
  11. GLYBURIDE [Concomitant]
     Indication: DIABETES MELLITUS
  12. NPH INSULIN [Concomitant]
     Dosage: 8 UNITS OF A LONG ACTING INSULIN ONCE A DAY
     Route: 065
  13. CHOLESTYRAMINE [Concomitant]
  14. METHOTREXATE [Concomitant]
  15. PREDNISONE [Concomitant]
  16. COUMADIN [Concomitant]

REACTIONS (3)
  - Liver function test abnormal [Unknown]
  - Arrhythmia [Unknown]
  - Bronchitis [Unknown]
